FAERS Safety Report 13524521 (Version 1)
Quarter: 2017Q2

REPORT INFORMATION
  Report Type: Report from Study
  Country: US (occurrence: US)
  Receive Date: 20170508
  Receipt Date: 20170508
  Transmission Date: 20170830
  Serious: Yes (Death)
  Sender: FDA-Public Use
  Company Number: US-ACTELION-A-NJ2015-120233

PATIENT
  Age: 84 Year
  Sex: Female

DRUGS (4)
  1. COUMADIN [Concomitant]
     Active Substance: WARFARIN SODIUM
  2. VENTAVIS [Suspect]
     Active Substance: ILOPROST
     Indication: PULMONARY HYPERTENSION
     Dosage: 5 MCG, 6-9X/DAY
     Route: 055
     Dates: start: 20150615, end: 20150923
  3. VENTAVIS [Suspect]
     Active Substance: ILOPROST
     Dosage: 10 UNK, 5XDAILY
     Route: 055
  4. TRACLEER [Concomitant]
     Active Substance: BOSENTAN
     Indication: PULMONARY ARTERIAL HYPERTENSION
     Route: 048

REACTIONS (9)
  - Glossitis [Unknown]
  - Condition aggravated [Unknown]
  - Death [Fatal]
  - Therapy non-responder [Unknown]
  - Drug ineffective [Unknown]
  - Cough [Unknown]
  - Oral pain [Not Recovered/Not Resolved]
  - Tongue discomfort [Unknown]
  - Fatigue [Unknown]

NARRATIVE: CASE EVENT DATE: 201602
